FAERS Safety Report 17459320 (Version 1)
Quarter: 2020Q1

REPORT INFORMATION
  Report Type: Spontaneous
  Country: FR (occurrence: FR)
  Receive Date: 20200226
  Receipt Date: 20200226
  Transmission Date: 20200409
  Serious: Yes (Other)
  Sender: FDA-Public Use
  Company Number: FR-MYLANLABS-2020M1020238

PATIENT
  Age: 48 Year
  Sex: Male
  Weight: 85 kg

DRUGS (3)
  1. FLAGYL [Suspect]
     Active Substance: METRONIDAZOLE\METRONIDAZOLE HYDROCHLORIDE
     Indication: TOOTH ABSCESS
     Dosage: UNK 9NON PR?CIS?)
     Route: 048
     Dates: start: 20200124, end: 20200125
  2. AMOXICILLIN. [Suspect]
     Active Substance: AMOXICILLIN
     Indication: TOOTH ABSCESS
     Dosage: UNK (NON PR?CIS?)
     Route: 048
     Dates: start: 20200118, end: 20200123
  3. CLARITHROMYCIN. [Suspect]
     Active Substance: CLARITHROMYCIN
     Indication: TOOTH ABSCESS
     Dosage: UNK (NON PR?CIS?)
     Route: 048
     Dates: start: 20200124, end: 20200125

REACTIONS (1)
  - Bipolar I disorder [Recovered/Resolved]

NARRATIVE: CASE EVENT DATE: 20200126
